FAERS Safety Report 12557575 (Version 1)
Quarter: 2016Q3

REPORT INFORMATION
  Report Type: Spontaneous
  Country: FR (occurrence: FR)
  Receive Date: 20160714
  Receipt Date: 20160714
  Transmission Date: 20161109
  Serious: Yes (Life-Threatening, Hospitalization)
  Sender: FDA-Public Use
  Company Number: FR-ASTRAZENECA-2016SE75306

PATIENT
  Age: 6803 Day
  Sex: Female

DRUGS (7)
  1. KLIPAL [Suspect]
     Active Substance: ACETAMINOPHEN\CODEINE PHOSPHATE
     Dosage: 12.0DF ONCE/SINGLE ADMINISTRATION
     Route: 048
     Dates: start: 20160609, end: 20160609
  2. DOLIPRANE [Suspect]
     Active Substance: ACETAMINOPHEN
     Dosage: 2.0DF ONCE/SINGLE ADMINISTRATION
     Route: 048
     Dates: start: 20160609, end: 20160609
  3. XEROQUEL [Suspect]
     Active Substance: QUETIAPINE FUMARATE
     Dosage: 33.0DF ONCE/SINGLE ADMINISTRATION
     Route: 048
     Dates: start: 20160609, end: 20160609
  4. SERTRALINE [Suspect]
     Active Substance: SERTRALINE HYDROCHLORIDE
     Dosage: 4.0DF ONCE/SINGLE ADMINISTRATION
     Route: 048
     Dates: start: 20160609, end: 20160609
  5. CEFPODOXIME [Suspect]
     Active Substance: CEFPODOXIME
     Dosage: 31.0DF ONCE/SINGLE ADMINISTRATION
     Route: 048
     Dates: start: 20160609, end: 20160609
  6. TRANXENE T-TAB [Suspect]
     Active Substance: CLORAZEPATE DIPOTASSIUM
     Dosage: 1.0DF ONCE/SINGLE ADMINISTRATION
     Route: 048
     Dates: start: 20160609, end: 20160609
  7. PREDNISOLONE. [Suspect]
     Active Substance: PREDNISOLONE
     Dosage: 13.0DF ONCE/SINGLE ADMINISTRATION
     Route: 048
     Dates: start: 20160609, end: 20160609

REACTIONS (6)
  - Ketoacidosis [Unknown]
  - Suicide attempt [Unknown]
  - Monogenic diabetes [Unknown]
  - Glycosuria [Unknown]
  - Overdose [Unknown]
  - Ketonuria [Unknown]

NARRATIVE: CASE EVENT DATE: 20160609
